FAERS Safety Report 14546832 (Version 12)
Quarter: 2020Q1

REPORT INFORMATION
  Report Type: Report from Study
  Country: CA (occurrence: CA)
  Receive Date: 20180219
  Receipt Date: 20200213
  Transmission Date: 20200409
  Serious: Yes (Other)
  Sender: FDA-Public Use
  Company Number: CA-BRISTOL-MYERS SQUIBB COMPANY-BMS-2017-033125

PATIENT
  Age: 57 Year
  Sex: Female

DRUGS (3)
  1. RAMIPRIL. [Concomitant]
     Active Substance: RAMIPRIL
     Indication: HYPERTENSION
     Dosage: 10 MILLIGRAM, DAILY
     Route: 048
  2. ABATACEPT [Suspect]
     Active Substance: ABATACEPT
     Indication: RHEUMATOID ARTHRITIS
     Dosage: 750 MILLIGRAM, Q4WK
     Route: 042
     Dates: start: 20110811, end: 20190327
  3. RAMIPRIL. [Concomitant]
     Active Substance: RAMIPRIL
     Indication: PRODUCT USED FOR UNKNOWN INDICATION
     Dosage: 5 MILLIGRAM, DAILY (AM)
     Route: 048

REACTIONS (23)
  - Arthralgia [Unknown]
  - Infusion site pain [Recovered/Resolved]
  - Poor venous access [Recovered/Resolved]
  - Therapeutic response decreased [Unknown]
  - Lower respiratory tract infection [Unknown]
  - Post procedural complication [Unknown]
  - Nasopharyngitis [Recovered/Resolved]
  - Back pain [Unknown]
  - Musculoskeletal pain [Unknown]
  - Hypotension [Recovered/Resolved]
  - Oral disorder [Unknown]
  - Tooth disorder [Unknown]
  - White blood cell count increased [Recovered/Resolved]
  - Infection [Unknown]
  - Rheumatoid arthritis [Not Recovered/Not Resolved]
  - Joint swelling [Recovered/Resolved]
  - Pneumonia [Recovered/Resolved]
  - Infusion site haemorrhage [Recovered/Resolved]
  - Influenza [Recovered/Resolved]
  - Alveolar osteitis [Unknown]
  - Phlebitis [Unknown]
  - Groin pain [Unknown]
  - Pain in extremity [Unknown]

NARRATIVE: CASE EVENT DATE: 20170322
